FAERS Safety Report 7304556-0 (Version None)
Quarter: 2011Q1

REPORT INFORMATION
  Report Type: 
  Country: None (occurrence: None)
  Receive Date: 20110222
  Receipt Date: 20101116
  Transmission Date: 20110831
  Serious: Yes (Hospitalization)
  Sender: FDA-Public Use
  Company Number: PHHY2010VE90419

PATIENT
  Sex: Female

DRUGS (2)
  1. CALCIBON (CALCIUM CITRATE) [Concomitant]
  2. ACLASTA [Suspect]
     Indication: OSTEOPOROSIS
     Dosage: 5 MG YEARLY
     Dates: start: 20100413

REACTIONS (1)
  - INTERVERTEBRAL DISC PROTRUSION [None]
